FAERS Safety Report 21513314 (Version 4)
Quarter: 2023Q1

REPORT INFORMATION
  Report Type: Report from Study
  Country: US (occurrence: US)
  Receive Date: 20221027
  Receipt Date: 20230119
  Transmission Date: 20230418
  Serious: Yes (Death, Other)
  Sender: FDA-Public Use
  Company Number: US-GILEAD-2022-0602758

PATIENT
  Age: 17 Year
  Sex: Female
  Weight: 64 kg

DRUGS (3)
  1. AMBRISENTAN [Suspect]
     Active Substance: AMBRISENTAN
     Indication: Pulmonary arterial hypertension
     Dosage: 10 MG, QD
     Route: 065
     Dates: start: 20151114
  2. AMBRISENTAN [Suspect]
     Active Substance: AMBRISENTAN
     Dosage: 5 MG
     Route: 065
  3. ADCIRCA [Concomitant]
     Active Substance: TADALAFIL
     Indication: Pulmonary arterial hypertension
     Dosage: 40 MG, QD
     Route: 065
     Dates: start: 202006

REACTIONS (6)
  - Death [Fatal]
  - Viral infection [Fatal]
  - Respiratory distress [Fatal]
  - Pulmonary hypertension [Fatal]
  - Malaise [Fatal]
  - Off label use [Fatal]

NARRATIVE: CASE EVENT DATE: 20120901
